FAERS Safety Report 4539266-6 (Version None)
Quarter: 2004Q4

REPORT INFORMATION
  Report Type: 
  Country: None (occurrence: None)
  Receive Date: 20041228
  Receipt Date: 20041217
  Transmission Date: 20050328
  Serious: Yes (Hospitalization)
  Sender: FDA-Public Use
  Company Number: IT-JNJFOC-20041204123

PATIENT
  Age: 39 Year
  Sex: Female

DRUGS (3)
  1. REMICADE [Suspect]
     Indication: CROHN'S DISEASE
     Dosage: 5MG - 10MG 1 IN 8 WEEKS
     Route: 042
  2. AZATHIOPRINE [Concomitant]
  3. AROFEXX [Concomitant]

REACTIONS (1)
  - PERICARDITIS LUPUS [None]
